FAERS Safety Report 8121720-1 (Version None)
Quarter: 2012Q1

REPORT INFORMATION
  Report Type: 
  Country: None (occurrence: None)
  Receive Date: 20120208
  Receipt Date: 20120201
  Transmission Date: 20120608
  Serious: Yes (Other)
  Sender: FDA-Public Use
  Company Number: DE-PFIZER INC-2012017930

PATIENT
  Age: 40 Year
  Sex: Female
  Weight: 85 kg

DRUGS (5)
  1. CELEBREX [Suspect]
     Dosage: 200 MG, 1X/DAY
     Route: 048
     Dates: end: 20120101
  2. CELEBREX [Suspect]
     Dosage: 200 MG, 2X/DAY
     Route: 048
     Dates: start: 20110901
  3. ETANERCEPT [Suspect]
     Indication: ANKYLOSING SPONDYLITIS
     Dosage: 50 MG, WEEKLY
     Route: 058
     Dates: start: 20110311
  4. CELEBREX [Suspect]
     Indication: ANKYLOSING SPONDYLITIS
     Dosage: 400 MG, 1X/DAY
     Route: 048
     Dates: start: 20040621
  5. CELEBREX [Suspect]
     Dosage: 200 MG, 1X/DAY
     Route: 048
     Dates: start: 20110601

REACTIONS (1)
  - SKIN CANCER [None]
